FAERS Safety Report 22159968 (Version 5)
Quarter: 2023Q2

REPORT INFORMATION
  Report Type: Spontaneous
  Country: FR (occurrence: FR)
  Receive Date: 20230331
  Receipt Date: 20230509
  Transmission Date: 20230721
  Serious: Yes (Other)
  Sender: FDA-Public Use
  Company Number: FR-AstraZeneca-2023A063808

PATIENT
  Age: 68 Year
  Sex: Female

DRUGS (17)
  1. IMATINIB [Interacting]
     Active Substance: IMATINIB
     Indication: Gastrointestinal stromal tumour
     Dosage: 400 MG, QD
     Route: 065
     Dates: end: 200804
  2. IMATINIB [Interacting]
     Active Substance: IMATINIB
     Indication: Lung adenocarcinoma
     Dosage: 400 MG, QD
     Route: 065
     Dates: end: 202009
  3. IMATINIB [Interacting]
     Active Substance: IMATINIB
     Dosage: 200 MG, QD
     Route: 065
     Dates: start: 202104, end: 202104
  4. IMATINIB [Interacting]
     Active Substance: IMATINIB
     Dosage: 300 MG, QD
     Route: 065
     Dates: start: 202104, end: 202110
  5. IMATINIB [Interacting]
     Active Substance: IMATINIB
     Dosage: 200 MG, QD
     Route: 065
     Dates: start: 202201, end: 202203
  6. IMATINIB [Interacting]
     Active Substance: IMATINIB
     Dosage: 100 MG, QD
     Route: 065
     Dates: start: 202203, end: 202206
  7. IMATINIB [Interacting]
     Active Substance: IMATINIB
     Dosage: 200 MG, QD
     Route: 065
     Dates: start: 202206
  8. CRIZOTINIB [Interacting]
     Active Substance: CRIZOTINIB
     Indication: Lung adenocarcinoma
     Dosage: 250 MG, QD
     Route: 065
     Dates: start: 202110
  9. CRIZOTINIB [Interacting]
     Active Substance: CRIZOTINIB
     Indication: Drug resistance
     Dosage: DOSE DECREASED TO 200 MG/DAY. IN JAN-2022, DOSE INCREASED TO 250 MG/DAY,
     Route: 065
     Dates: start: 202111
  10. CRIZOTINIB [Interacting]
     Active Substance: CRIZOTINIB
     Dosage: DOSE INCREASED TO 250 MG/DAY
     Route: 065
     Dates: start: 202201
  11. CRIZOTINIB [Interacting]
     Active Substance: CRIZOTINIB
     Dosage: 200 MG, QD
     Route: 065
     Dates: end: 202203
  12. CRIZOTINIB [Interacting]
     Active Substance: CRIZOTINIB
     Dosage: 250 MG, QD
     Route: 065
     Dates: start: 202203, end: 202206
  13. AFATINIB [Suspect]
     Active Substance: AFATINIB
     Indication: Lung adenocarcinoma
     Dosage: UNK
     Route: 065
     Dates: start: 2020, end: 202009
  14. OSIMERTINIB [Suspect]
     Active Substance: OSIMERTINIB
     Indication: Lung adenocarcinoma
     Dosage: 40 MG, QD
     Route: 048
     Dates: start: 202009
  15. OSIMERTINIB [Suspect]
     Active Substance: OSIMERTINIB
     Indication: Gastrointestinal stromal tumour
     Dosage: 80 MG, QD
     Route: 048
     Dates: start: 202009
  16. OSIMERTINIB [Suspect]
     Active Substance: OSIMERTINIB
     Indication: Drug resistance
     Dosage: DOSE REDUCTION TO 40 MG/DAY IN 2021
     Route: 065
     Dates: start: 202104
  17. OSIMERTINIB [Suspect]
     Active Substance: OSIMERTINIB
     Dosage: 300 MG, QD
     Route: 065
     Dates: start: 202104

REACTIONS (6)
  - Blood creatine phosphokinase increased [Recovered/Resolved]
  - Acute kidney injury [Recovered/Resolved]
  - Drug resistance mutation [Unknown]
  - Drug interaction [Recovered/Resolved]
  - Diarrhoea [Recovered/Resolved]
  - Overdose [Unknown]
